FAERS Safety Report 6759298-7 (Version None)
Quarter: 2010Q2

REPORT INFORMATION
  Report Type: 
  Country: None (occurrence: None)
  Receive Date: 20100607
  Receipt Date: 20100531
  Transmission Date: 20101027
  Serious: Yes (Other)
  Sender: FDA-Public Use
  Company Number: SE-PFIZER INC-2010067841

PATIENT
  Sex: Female

DRUGS (1)
  1. XALATAN [Suspect]

REACTIONS (4)
  - ERYTHEMA [None]
  - PHOTOSENSITIVITY REACTION [None]
  - REACTION TO PRESERVATIVES [None]
  - SWELLING FACE [None]
